FAERS Safety Report 17731468 (Version 3)
Quarter: 2020Q2

REPORT INFORMATION
  Report Type: Spontaneous
  Country: US (occurrence: US)
  Receive Date: 20200430
  Receipt Date: 20200513
  Transmission Date: 20200714
  Serious: Yes (Hospitalization, Other)
  Sender: FDA-Public Use
  Company Number: US-009507513-2004USA009247

PATIENT
  Age: 90 Year
  Sex: Female

DRUGS (3)
  1. ASMANEX [Suspect]
     Active Substance: MOMETASONE FUROATE
     Indication: ASTHMA
     Dosage: 2 PUFFS, EVERY MORNING (QAM)
     Route: 055
     Dates: start: 2000
  2. ALVESCO [Suspect]
     Active Substance: CICLESONIDE
     Dosage: INHALER
     Route: 055
     Dates: start: 202005
  3. ASMANEX [Suspect]
     Active Substance: MOMETASONE FUROATE
     Dosage: 2 PUFFS, EVERY MORNING (QAM)
     Route: 055
     Dates: end: 20200507

REACTIONS (4)
  - Product quality issue [Unknown]
  - Adverse event [Unknown]
  - Poor quality device used [Unknown]
  - Burn oral cavity [Unknown]

NARRATIVE: CASE EVENT DATE: 202002
